FAERS Safety Report 4469069-2 (Version None)
Quarter: 2004Q4

REPORT INFORMATION
  Report Type: 
  Country: None (occurrence: None)
  Receive Date: 20041006
  Receipt Date: 20041006
  Transmission Date: 20050328
  Serious: Yes (Other)
  Sender: FDA-Public Use
  Company Number: None

PATIENT
  Age: 39 Year
  Sex: Female
  Weight: 58.9676 kg

DRUGS (4)
  1. LOTRONEX [Suspect]
     Indication: DIARRHOEA
     Dosage: 1 MG Q DAY PO
     Route: 048
  2. LOTRONEX [Suspect]
     Indication: IRRITABLE BOWEL SYNDROME
     Dosage: 1 MG Q DAY PO
     Route: 048
  3. OMEPRAZOLE [Concomitant]
  4. MICROGESTIN FE [Concomitant]

REACTIONS (4)
  - ABDOMINAL PAIN UPPER [None]
  - BACK PAIN [None]
  - MALAISE [None]
  - NAUSEA [None]
